FAERS Safety Report 15904125 (Version 1)
Quarter: 2019Q1

REPORT INFORMATION
  Report Type: Spontaneous
  Country: DE (occurrence: DE)
  Receive Date: 20190204
  Receipt Date: 20190204
  Transmission Date: 20190417
  Serious: Yes (Hospitalization)
  Sender: FDA-Public Use
  Company Number: DE-TEVA-2019-DE-1006539

PATIENT
  Age: 38 Year
  Sex: Male
  Weight: 86 kg

DRUGS (2)
  1. PEGASYS [Suspect]
     Active Substance: PEGINTERFERON ALFA-2A
     Indication: HEPATITIS NON-A NON-B
     Route: 058
     Dates: start: 20030509
  2. RIBAVIRIN. [Suspect]
     Active Substance: RIBAVIRIN
     Indication: HEPATITIS NON-A NON-B
     Dosage: 1.2 GRAM DAILY;
     Route: 048
     Dates: start: 20030509

REACTIONS (2)
  - Confusional state [Unknown]
  - Self-injurious ideation [Recovering/Resolving]

NARRATIVE: CASE EVENT DATE: 20040104
